FAERS Safety Report 12292282 (Version 10)
Quarter: 2021Q4

REPORT INFORMATION
  Report Type: Spontaneous
  Country: FR (occurrence: FR)
  Receive Date: 20160421
  Receipt Date: 20211220
  Transmission Date: 20220303
  Serious: Yes (Hospitalization, Disabling, Congenital Anomaly, Other)
  Sender: FDA-Public Use
  Company Number: FR-ABBVIE-16P-163-1610499-00

PATIENT
  Sex: Male

DRUGS (5)
  1. VALPROATE SODIUM [Suspect]
     Active Substance: VALPROATE SODIUM
     Indication: Maternal exposure timing unspecified
     Route: 064
  2. FOLIC ACID [Concomitant]
     Active Substance: FOLIC ACID
     Indication: Product used for unknown indication
  3. PHENOBARBITAL [Concomitant]
     Active Substance: PHENOBARBITAL
     Indication: Product used for unknown indication
  4. PRAZEPAM [Concomitant]
     Active Substance: PRAZEPAM
     Indication: Product used for unknown indication
  5. RIVOTRIL [Concomitant]
     Active Substance: CLONAZEPAM
     Indication: Product used for unknown indication

REACTIONS (54)
  - Mental disorder [Not Recovered/Not Resolved]
  - Encopresis [Recovered/Resolved]
  - Kyphosis [Unknown]
  - Behaviour disorder [Recovering/Resolving]
  - Intellectual disability [Unknown]
  - Psychomotor retardation [Unknown]
  - Speech disorder [Recovering/Resolving]
  - Fear [Unknown]
  - Foetal exposure during pregnancy [Unknown]
  - Psychomotor skills impaired [Unknown]
  - Personality disorder [Unknown]
  - Generalised tonic-clonic seizure [Unknown]
  - Learning disorder [Unknown]
  - Tension headache [Unknown]
  - Ear malformation [Unknown]
  - Foetal anticonvulsant syndrome [Unknown]
  - Dysmorphism [Unknown]
  - Dysmorphism [Recovering/Resolving]
  - Psychomotor skills impaired [Recovering/Resolving]
  - Psychomotor skills impaired [Unknown]
  - Foot deformity [Unknown]
  - Limb malformation [Unknown]
  - Limb malformation [Unknown]
  - Congenital joint malformation [Unknown]
  - Cognitive disorder [Unknown]
  - Scoliosis [Unknown]
  - Mental impairment [Unknown]
  - Strabismus [Unknown]
  - Personality disorder of childhood [Unknown]
  - Encephalopathy [Unknown]
  - Bradykinesia [Unknown]
  - Attention deficit hyperactivity disorder [Unknown]
  - Visual impairment [Unknown]
  - Sleep disorder [Unknown]
  - Memory impairment [Unknown]
  - Nasal turbinate hypertrophy [Unknown]
  - Adenoidal hypertrophy [Unknown]
  - Gait disturbance [Unknown]
  - Muscle rupture [Unknown]
  - Scapular dyskinesis [Unknown]
  - Autism spectrum disorder [Unknown]
  - Dysgraphia [Unknown]
  - Dyscalculia [Unknown]
  - Loss of personal independence in daily activities [Unknown]
  - Learning disorder [Unknown]
  - Sensory processing disorder [Unknown]
  - Echolalia [Unknown]
  - Hypotonia [Unknown]
  - Tension headache [Unknown]
  - Ear, nose and throat infection [Unknown]
  - Ear, nose and throat infection [Unknown]
  - Ear, nose and throat infection [Unknown]
  - Fear [Unknown]
  - Anxiety [Unknown]

NARRATIVE: CASE EVENT DATE: 19911225
